FAERS Safety Report 22002782 (Version 4)
Quarter: 2023Q1

REPORT INFORMATION
  Report Type: Report from Study
  Country: PT (occurrence: PT)
  Receive Date: 20230217
  Receipt Date: 20230308
  Transmission Date: 20230418
  Serious: Yes (Other)
  Sender: FDA-Public Use
  Company Number: PT-ABBVIE-4309222

PATIENT
  Age: 69 Year
  Sex: Male

DRUGS (8)
  1. CARBIDOPA\LEVODOPA [Suspect]
     Active Substance: CARBIDOPA\LEVODOPA
     Indication: Parkinson^s disease
     Dosage: 20 MG + 5 MG/6.3CC;MAINT:2.3CC/H;EXTRA:1CC/THERAPY START DATE: 2022
     Route: 050
     Dates: start: 2022, end: 20221021
  2. CARBIDOPA\LEVODOPA [Suspect]
     Active Substance: CARBIDOPA\LEVODOPA
     Dosage: 20 MG + 5 MG (VIA PEG)/19CC;MAINT:7.2CC/H;EXTRA:2CC
     Route: 050
     Dates: start: 20221021
  3. CARBIDOPA\LEVODOPA [Suspect]
     Active Substance: CARBIDOPA\LEVODOPA
     Dosage: 20 MG + 5 MG/6.3CC;MAINT:2.3CC/H;EXTRA:1CC/THERAPY END DATE: 2022
     Route: 050
     Dates: start: 20220727
  4. Betmiga (mirabegron) [Concomitant]
     Indication: Urinary incontinence
     Dosage: 1 TABLET/FREQUENCY TEXT: AT 8AM/START DATE TEXT: BEFORE DUODOPA
     Route: 048
  5. CLOZAPINE [Concomitant]
     Active Substance: CLOZAPINE
     Indication: Product used for unknown indication
     Route: 048
     Dates: start: 20220730
  6. MIDODRINE HYDROCHLORIDE [Concomitant]
     Active Substance: MIDODRINE HYDROCHLORIDE
     Indication: Orthostatic hypotension
     Dosage: 6 TABLET/START DATE TEXT: BEFORE DUODOPA/QUENCY TEXT: 3TABLETS AT 8H+1 TABLET AT 10H30/13H/18H
     Route: 048
  7. SINEMET CR [Concomitant]
     Active Substance: CARBIDOPA\LEVODOPA
     Indication: Parkinson^s disease
     Dosage: 1.5 TABLET/FREQUENCY TEXT: AT BEDTIME/START DATE TEXT: BEFORE DUODOPA
     Route: 048
  8. SINEMET [Concomitant]
     Active Substance: CARBIDOPA\LEVODOPA
     Indication: Parkinson^s disease
     Dosage: 25/100-
     Route: 048
     Dates: start: 20220731

REACTIONS (3)
  - Choking [Not Recovered/Not Resolved]
  - Secretion discharge [Recovered/Resolved]
  - Productive cough [Recovered/Resolved]

NARRATIVE: CASE EVENT DATE: 20230212
